FAERS Safety Report 24039007 (Version 5)
Quarter: 2024Q4

REPORT INFORMATION
  Report Type: Spontaneous
  Country: AU (occurrence: AU)
  Receive Date: 20240702
  Receipt Date: 20241025
  Transmission Date: 20250114
  Serious: Yes (Other)
  Sender: TOLMAR
  Company Number: AU-TOLMAR, INC.-24AU050045

PATIENT
  Sex: Male

DRUGS (7)
  1. ELIGARD [Suspect]
     Active Substance: LEUPROLIDE ACETATE
     Indication: Prostate cancer
     Dosage: 22.5 MILLIGRAM, Q 3 MONTH
     Route: 058
     Dates: start: 20240208
  2. ELIGARD [Suspect]
     Active Substance: LEUPROLIDE ACETATE
     Dosage: 22.5 MILLIGRAM, Q 3 MONTH
     Route: 058
     Dates: start: 20240502
  3. ELIGARD [Suspect]
     Active Substance: LEUPROLIDE ACETATE
     Dosage: 22.5 MILLIGRAM, Q 3 MONTH
     Route: 058
     Dates: start: 20240726
  4. ELIGARD [Suspect]
     Active Substance: LEUPROLIDE ACETATE
     Indication: Prostate cancer
     Dosage: UNK
  5. UNSPECIFIED INGREDIENT [Suspect]
     Active Substance: UNSPECIFIED INGREDIENT
     Indication: Blood pressure increased
     Dosage: UNK
  6. UNSPECIFIED INGREDIENT [Suspect]
     Active Substance: UNSPECIFIED INGREDIENT
     Indication: Blood pressure increased
     Dosage: UNK
  7. RADIATION THERAPY [Concomitant]
     Active Substance: RADIATION THERAPY
     Indication: Prostate cancer
     Dosage: UNK, 3 DAYS

REACTIONS (27)
  - Haemorrhage intracranial [Unknown]
  - Erectile dysfunction [Unknown]
  - Blood pressure increased [Not Recovered/Not Resolved]
  - Fat tissue increased [Unknown]
  - Somnolence [Unknown]
  - Emotional disorder [Not Recovered/Not Resolved]
  - Crying [Not Recovered/Not Resolved]
  - Helplessness [Unknown]
  - Cognitive disorder [Unknown]
  - Brain fog [Unknown]
  - Amnesia [Unknown]
  - Abdominal discomfort [Unknown]
  - Dysstasia [Unknown]
  - Impaired quality of life [Unknown]
  - Cough [Unknown]
  - Emotional distress [Unknown]
  - Frustration tolerance decreased [Not Recovered/Not Resolved]
  - Muscle twitching [Not Recovered/Not Resolved]
  - Blood cholesterol increased [Unknown]
  - Pain [Not Recovered/Not Resolved]
  - Penile size reduced [Unknown]
  - Fatigue [Unknown]
  - Muscle atrophy [Unknown]
  - Alopecia [Not Recovered/Not Resolved]
  - Nocturia [Unknown]
  - Prostatic specific antigen increased [Unknown]
  - Hot flush [Not Recovered/Not Resolved]
